FAERS Safety Report 8501689-8 (Version None)
Quarter: 2012Q3

REPORT INFORMATION
  Report Type: 
  Country: None (occurrence: None)
  Receive Date: 20120711
  Receipt Date: 20120629
  Transmission Date: 20120928
  Serious: Yes (Death, Hospitalization)
  Sender: FDA-Public Use
  Company Number: FR-BIOGENIDEC-2012BI024017

PATIENT
  Age: 48 Year
  Sex: Male

DRUGS (2)
  1. ELSEP [Concomitant]
     Indication: MULTIPLE SCLEROSIS
     Route: 042
     Dates: start: 20040701, end: 20041207
  2. AVONEX [Suspect]
     Indication: MULTIPLE SCLEROSIS
     Route: 042
     Dates: start: 20040101

REACTIONS (5)
  - PULMONARY EMBOLISM [None]
  - CEREBROVASCULAR ACCIDENT [None]
  - PANCREATIC INJURY [None]
  - LIVER DISORDER [None]
  - DEEP VEIN THROMBOSIS [None]
